FAERS Safety Report 7832025-8 (Version None)
Quarter: 2011Q4

REPORT INFORMATION
  Report Type: 
  Country: None (occurrence: None)
  Receive Date: 20111021
  Receipt Date: 20111012
  Transmission Date: 20120403
  Serious: Yes (Other)
  Sender: FDA-Public Use
  Company Number: US-ASTRAZENECA-2011SE61354

PATIENT
  Age: 61 Year
  Sex: Male
  Weight: 79.4 kg

DRUGS (6)
  1. SEROQUEL [Suspect]
     Indication: DEPRESSION
     Route: 048
     Dates: start: 20030101
  2. LISINOPRIL [Suspect]
     Route: 048
  3. SEROQUEL [Suspect]
     Indication: ANXIETY
     Route: 048
     Dates: start: 20030101
  4. PLAVIX [Concomitant]
  5. METOPROLOL TARTRATE [Suspect]
     Route: 048
  6. PRAVASTATIN [Concomitant]

REACTIONS (3)
  - DRUG DOSE OMISSION [None]
  - CONVULSION [None]
  - OFF LABEL USE [None]
